FAERS Safety Report 9255954 (Version 1)
Quarter: 2013Q2

REPORT INFORMATION
  Report Type: Spontaneous
  Country: GB (occurrence: GB)
  Receive Date: 20130425
  Receipt Date: 20130425
  Transmission Date: 20140414
  Serious: Yes (Hospitalization, Other)
  Sender: FDA-Public Use
  Company Number: PHHY2013GB039092

PATIENT
  Age: 74 Year
  Sex: Female

DRUGS (13)
  1. LEVOFLOXACIN [Suspect]
     Dosage: 500 MG, BID
     Route: 048
     Dates: start: 20130401, end: 20130404
  2. LIDOCAINE [Concomitant]
  3. CLOPIDOGREL [Concomitant]
  4. DALTEPARIN [Concomitant]
  5. FUROSEMIDE [Concomitant]
  6. ISOSORBIDE [Concomitant]
  7. RAMIPRIL [Concomitant]
  8. SIMVASTATIN [Concomitant]
  9. BUTRANS//BUPRENORPHINE [Concomitant]
  10. CITALOPRAM [Concomitant]
  11. GABAPENTIN [Concomitant]
  12. RANITIDINE [Concomitant]
  13. CALCICHEW [Concomitant]

REACTIONS (1)
  - Myoclonus [Recovered/Resolved]
